FAERS Safety Report 4409173-8 (Version None)
Quarter: 2004Q2

REPORT INFORMATION
  Report Type: 
  Country: None (occurrence: None)
  Receive Date: 20040618
  Receipt Date: 20040416
  Transmission Date: 20050107
  Serious: No
  Sender: FDA-Public Use
  Company Number: US-JNJFOC-20040404403

PATIENT
  Age: 35 Year
  Sex: Female
  Weight: 63.5036 kg

DRUGS (6)
  1. ORTHO EVRA [Suspect]
     Indication: CONTRACEPTION
     Dosage: 1 DOSE(S), 3 IN 4 WEEK, TRANSDERMAL
     Route: 062
     Dates: start: 20040301
  2. CALCIUM (CALCIUM) [Concomitant]
  3. IRON (RION) [Concomitant]
  4. CENTRUM MULTIVITAMINS (CENTRUM) [Concomitant]
  5. CALTRATE (CALCIUM CARBONATE) [Concomitant]
  6. B12 INJECTION (CYANOCOBALAMIN)INJECTION [Concomitant]

REACTIONS (2)
  - MENSTRUATION IRREGULAR [None]
  - METRORRHAGIA [None]
